FAERS Safety Report 13030208 (Version 1)
Quarter: 2016Q4

REPORT INFORMATION
  Report Type: Spontaneous
  Country: GB (occurrence: GB)
  Receive Date: 20161215
  Receipt Date: 20161215
  Transmission Date: 20170207
  Serious: Yes (Other)
  Sender: FDA-Public Use
  Company Number: GB-B.I. PHARMACEUTICALS,INC./RIDGEFIELD-2016-BI-084219

PATIENT
  Age: 53 Year
  Sex: Male

DRUGS (1)
  1. MICARDIS [Suspect]
     Active Substance: TELMISARTAN
     Indication: HYPERTENSION
     Route: 048

REACTIONS (5)
  - Pruritus [Unknown]
  - Palpitations [Recovered/Resolved]
  - Withdrawal syndrome [Unknown]
  - Malaise [Recovered/Resolved]
  - Anxiety [Recovered/Resolved]
